FAERS Safety Report 19658200 (Version 1)
Quarter: 2021Q3

REPORT INFORMATION
  Report Type: Other
  Country: HR (occurrence: HR)
  Receive Date: 20210804
  Receipt Date: 20210804
  Transmission Date: 20211014
  Serious: Yes (Hospitalization, Other)
  Sender: FDA-Public Use
  Company Number: HR-APPCO PHARMA LLC-2114631

PATIENT
  Age: 46 Year
  Sex: Female

DRUGS (12)
  1. FUROSEMIDE. [Suspect]
     Active Substance: FUROSEMIDE
     Route: 048
  2. PANTOPRAZOLE [Suspect]
     Active Substance: PANTOPRAZOLE
     Route: 048
  3. FENOFIBRATE. [Suspect]
     Active Substance: FENOFIBRATE
     Indication: PRODUCT USED FOR UNKNOWN INDICATION
  4. CEFTRIAXONE. [Suspect]
     Active Substance: CEFTRIAXONE
     Route: 050
  5. PREDNISONE. [Suspect]
     Active Substance: PREDNISONE
     Route: 048
  6. CALCITRIOL. [Suspect]
     Active Substance: CALCITRIOL
     Route: 048
  7. DICLOFENAC [Suspect]
     Active Substance: DICLOFENAC
     Route: 065
  8. PROPRANOLOL [Suspect]
     Active Substance: PROPRANOLOL HYDROCHLORIDE
     Route: 048
  9. CALCIUM CARBONATE. [Suspect]
     Active Substance: CALCIUM CARBONATE
     Route: 048
  10. SULPHAMETHOXAZOLE/TRIMETHOPRIM [Suspect]
     Active Substance: SULFAMETHOXAZOLE\TRIMETHOPRIM
     Route: 065
  11. METHYLPREDNISOLONE. [Concomitant]
     Active Substance: METHYLPREDNISOLONE
     Route: 050
  12. ATORVASTATIN CALCIUM. [Suspect]
     Active Substance: ATORVASTATIN CALCIUM
     Route: 048

REACTIONS (4)
  - Nephropathy toxic [Unknown]
  - Drug-induced liver injury [Unknown]
  - Drug interaction [Unknown]
  - Myopathy toxic [Unknown]
